FAERS Safety Report 10049632 (Version 2)
Quarter: 2014Q2

REPORT INFORMATION
  Report Type: Report from Study
  Country: IN (occurrence: IN)
  Receive Date: 20140401
  Receipt Date: 20140401
  Transmission Date: 20141212
  Serious: Yes (Death)
  Sender: FDA-Public Use
  Company Number: PHHY2013IN065076

PATIENT
  Age: 54 Year
  Sex: Male

DRUGS (2)
  1. AFINITOR [Suspect]
     Indication: BREAST CANCER
     Dosage: 5 MG, QD
     Route: 048
     Dates: start: 20120523, end: 20130614
  2. AFINITOR [Suspect]
     Dosage: 5 MG, UNK
     Route: 048
     Dates: start: 20130626

REACTIONS (3)
  - Death [Fatal]
  - Mouth swelling [Not Recovered/Not Resolved]
  - General physical health deterioration [Unknown]
